FAERS Safety Report 11636951 (Version 10)
Quarter: 2019Q1

REPORT INFORMATION
  Report Type: Spontaneous
  Country: CA (occurrence: CA)
  Receive Date: 20151016
  Receipt Date: 20190325
  Transmission Date: 20190417
  Serious: Yes (Other)
  Sender: FDA-Public Use
  Company Number: CA-PFIZER INC-2015341224

PATIENT
  Age: 60 Year
  Sex: Female

DRUGS (11)
  1. APO-DICLOFENAC [Suspect]
     Active Substance: DICLOFENAC
     Dosage: UNK
     Route: 065
  2. METHOTREXATE SODIUM. [Suspect]
     Active Substance: METHOTREXATE SODIUM
     Dosage: 20 MG, QWK
     Route: 048
  3. ORENCIA [Suspect]
     Active Substance: ABATACEPT
     Indication: RHEUMATOID ARTHRITIS
     Dosage: UNK
     Route: 058
     Dates: start: 201305
  4. ENBREL [Suspect]
     Active Substance: ETANERCEPT
     Indication: RHEUMATOID ARTHRITIS
     Dosage: UNK
     Dates: start: 2002, end: 2013
  5. ARTHROTEC [Suspect]
     Active Substance: DICLOFENAC SODIUM\MISOPROSTOL
     Dosage: UNK
  6. DICLOFENAC [Suspect]
     Active Substance: DICLOFENAC
     Dosage: UNK
     Route: 065
  7. APO-PREDNISONE [Suspect]
     Active Substance: PREDNISONE
     Indication: RHEUMATOID ARTHRITIS
     Dosage: 5 MG, UNK
  8. APO-DICLOFENAC [Suspect]
     Active Substance: DICLOFENAC
     Dosage: UNK
     Route: 061
  9. CYTOTEC [Suspect]
     Active Substance: MISOPROSTOL
     Dosage: UNK
     Route: 065
  10. MOBICOX [Suspect]
     Active Substance: MELOXICAM
     Dosage: UNK
     Route: 065
  11. PREDNISONE. [Suspect]
     Active Substance: PREDNISONE
     Indication: RHEUMATOID ARTHRITIS
     Dosage: 5 MG, 1X/DAY
     Route: 065

REACTIONS (10)
  - Treatment failure [Unknown]
  - Diabetes mellitus [Unknown]
  - Headache [Unknown]
  - Mass [Unknown]
  - Arthropathy [Unknown]
  - Drug hypersensitivity [Unknown]
  - Condition aggravated [Unknown]
  - Abdominal discomfort [Unknown]
  - Pruritus [Unknown]
  - Joint swelling [Unknown]
